FAERS Safety Report 5410732-4 (Version None)
Quarter: 2007Q3

REPORT INFORMATION
  Report Type: 
  Country: None (occurrence: None)
  Receive Date: 20070810
  Receipt Date: 20070123
  Transmission Date: 20080115
  Serious: No
  Sender: FDA-Public Use
  Company Number: A0636709A

PATIENT
  Age: 71 Year
  Sex: Female

DRUGS (6)
  1. PAXIL CR [Suspect]
     Indication: OBSESSIVE-COMPULSIVE DISORDER
     Dosage: 25MG VARIABLE DOSE
     Route: 048
     Dates: start: 20051001, end: 20051201
  2. VALIUM [Concomitant]
  3. DEPAKOTE [Concomitant]
  4. PREDNISONE TAB [Concomitant]
  5. LOTREL [Concomitant]
  6. ZYRTEC [Concomitant]

REACTIONS (1)
  - DRUG INEFFECTIVE [None]
